FAERS Safety Report 10888618 (Version 1)
Quarter: 2015Q1

REPORT INFORMATION
  Report Type: Spontaneous
  Country: CH (occurrence: CH)
  Receive Date: 20150305
  Receipt Date: 20150305
  Transmission Date: 20150721
  Serious: Yes (Other)
  Sender: FDA-Public Use
  Company Number: CH-TEVA-543586ISR

PATIENT
  Age: 73 Year
  Sex: Male

DRUGS (4)
  1. ASPIRIN. [Concomitant]
     Active Substance: ASPIRIN
     Dosage: 100 MILLIGRAM DAILY;
     Route: 048
  2. PEMZEK PLUS [Concomitant]
     Active Substance: CANDESARTAN CILEXETIL\HYDROCHLOROTHIAZIDE
     Dosage: 1 DOSAGE FORMS DAILY; 1DF=16MG CANDESARTAN CILEXETIL+12.5MG HYDROCHLOROTHIAZIDE
     Route: 048
  3. SIMVASTATIN-MEPHA 40MG [Suspect]
     Active Substance: SIMVASTATIN
     Indication: HYPERCHOLESTEROLAEMIA
     Dosage: 40 MILLIGRAM DAILY;
     Route: 048
     Dates: start: 1999, end: 20150128
  4. SIMVASTATIN-MEPHA 40MG [Suspect]
     Active Substance: SIMVASTATIN
     Indication: VASCULAR ENCEPHALOPATHY

REACTIONS (3)
  - Myalgia [Recovered/Resolved]
  - Bursitis [Recovered/Resolved]
  - C-reactive protein increased [Recovered/Resolved]

NARRATIVE: CASE EVENT DATE: 201409
